FAERS Safety Report 8154145-3 (Version None)
Quarter: 2012Q1

REPORT INFORMATION
  Report Type: 
  Country: None (occurrence: None)
  Receive Date: 20120221
  Receipt Date: 20120215
  Transmission Date: 20120608
  Serious: No
  Sender: FDA-Public Use
  Company Number: US-PFIZER INC-2012040205

PATIENT
  Sex: Female
  Weight: 73 kg

DRUGS (2)
  1. PREMARIN [Suspect]
     Indication: VULVOVAGINAL DRYNESS
     Dosage: UNK, 1X/DAY
     Route: 067
     Dates: start: 20120213
  2. PREMARIN [Suspect]
     Indication: HORMONE REPLACEMENT THERAPY

REACTIONS (3)
  - ARTHRALGIA [None]
  - MUSCULOSKELETAL STIFFNESS [None]
  - BACK PAIN [None]
